FAERS Safety Report 25778750 (Version 1)
Quarter: 2025Q3

REPORT INFORMATION
  Report Type: Spontaneous
  Country: US (occurrence: None)
  Receive Date: 20250908
  Receipt Date: 20250908
  Transmission Date: 20251021
  Serious: Yes (Hospitalization)
  Sender: FDA-CTU
  Company Number: None

PATIENT
  Sex: Female

DRUGS (11)
  1. TACROLIMUS [Suspect]
     Active Substance: TACROLIMUS
     Indication: Renal transplant
     Dates: start: 20210910
  2. ACETAMIN TAB 325MG [Concomitant]
  3. ACYCLOVIR [Concomitant]
     Active Substance: ACYCLOVIR
  4. ALBUTEROL AER HFA [Concomitant]
  5. ASPIRIN EC TAB 81 MG [Concomitant]
  6. BACTRIM DS [Concomitant]
     Active Substance: SULFAMETHOXAZOLE\TRIMETHOPRIM
  7. BREO ELLIPTA INH 200-25 [Concomitant]
  8. BUSPIRONE TAB5MG [Concomitant]
  9. CALCIUM TAB 600MG [Concomitant]
  10. CALCIUM TAB 600MG [Concomitant]
  11. CELLCEPT [Concomitant]
     Active Substance: MYCOPHENOLATE MOFETIL

REACTIONS (3)
  - Kidney infection [None]
  - Sepsis [None]
  - Urinary tract infection [None]
